FAERS Safety Report 5669661-3 (Version None)
Quarter: 2008Q1

REPORT INFORMATION
  Report Type: 
  Country: None (occurrence: None)
  Receive Date: 20080317
  Receipt Date: 20080313
  Transmission Date: 20080703
  Serious: Yes (Death)
  Sender: FDA-Public Use
  Company Number: BW-GILEAD-2008-0015662

PATIENT
  Age: 41 Year
  Sex: Female
  Weight: 52.5 kg

DRUGS (13)
  1. TRUVADA [Suspect]
     Indication: ACQUIRED IMMUNODEFICIENCY SYNDROME
     Dosage: 300/200 MG
     Route: 048
     Dates: start: 20070920, end: 20080208
  2. NEVIRAPINE [Suspect]
     Indication: ACQUIRED IMMUNODEFICIENCY SYNDROME
     Route: 048
     Dates: start: 20071031, end: 20080208
  3. ALUVIA [Suspect]
     Indication: ACQUIRED IMMUNODEFICIENCY SYNDROME
     Dosage: 200/50 MG
     Route: 048
     Dates: start: 20070920, end: 20071030
  4. VITAMIN CAP [Concomitant]
     Route: 048
     Dates: start: 20080210
  5. HYDROCORTISONE [Concomitant]
     Route: 058
     Dates: start: 20080213
  6. FERROUS SULFATE TAB [Concomitant]
     Route: 048
     Dates: start: 20080208
  7. FOLIC ACID [Concomitant]
     Route: 048
     Dates: start: 20080208
  8. PYRIDOXINE [Concomitant]
     Route: 048
     Dates: start: 20080208
  9. FLUCONAZOLE [Concomitant]
     Route: 048
     Dates: start: 20080208
  10. METRONIDAZOLE HCL [Concomitant]
     Route: 042
     Dates: start: 20080208
  11. AMPICILLIN [Concomitant]
     Route: 048
     Dates: start: 20080208
  12. RIFAMPICIN [Concomitant]
     Route: 048
     Dates: start: 20071031
  13. ISONIAZID [Concomitant]
     Route: 048
     Dates: start: 20071031

REACTIONS (1)
  - DEATH [None]
